FAERS Safety Report 5742159-X (Version None)
Quarter: 2008Q2

REPORT INFORMATION
  Report Type: 
  Country: None (occurrence: None)
  Receive Date: 20080519
  Receipt Date: 20080514
  Transmission Date: 20081010
  Serious: Yes (Other)
  Sender: FDA-Public Use
  Company Number: GB-BRISTOL-MYERS SQUIBB COMPANY-14192850

PATIENT

DRUGS (1)
  1. COAPROVEL [Suspect]

REACTIONS (1)
  - GASTROINTESTINAL SURGERY [None]
